FAERS Safety Report 14669353 (Version 1)
Quarter: 2018Q1

REPORT INFORMATION
  Report Type: Spontaneous
  Country: US (occurrence: US)
  Receive Date: 20180321
  Receipt Date: 20180321
  Transmission Date: 20180509
  Serious: Yes (Death)
  Sender: FDA-Public Use
  Company Number: None

PATIENT
  Age: 66 Year
  Sex: Male

DRUGS (1)
  1. DEPO-TESTOSERONE [Suspect]
     Active Substance: TESTOSTERONE CYPIONATE
     Dosage: ?          OTHER FREQUENCY:MONTHY;?
     Route: 030

REACTIONS (1)
  - Death [None]
